FAERS Safety Report 12736106 (Version 3)
Quarter: 2016Q3

REPORT INFORMATION
  Report Type: Spontaneous
  Country: US (occurrence: US)
  Receive Date: 20160912
  Receipt Date: 20160928
  Transmission Date: 20161109
  Serious: No
  Sender: FDA-Public Use
  Company Number: US-PFIZER INC-2016423542

PATIENT
  Age: 67 Year
  Sex: Male

DRUGS (1)
  1. SUTENT [Suspect]
     Active Substance: SUNITINIB MALATE
     Indication: METASTATIC RENAL CELL CARCINOMA
     Dosage: 50 MG, CYCLIC (28 DAYS ON/14 DAYS OFF)
     Dates: start: 20160823

REACTIONS (7)
  - Fatigue [Unknown]
  - Malaise [Unknown]
  - Yellow skin [Unknown]
  - Blood creatinine increased [Unknown]
  - Pyrexia [Unknown]
  - Chromaturia [Unknown]
  - Jaundice [Unknown]

NARRATIVE: CASE EVENT DATE: 2016
